FAERS Safety Report 25761781 (Version 1)
Quarter: 2025Q3

REPORT INFORMATION
  Report Type: Spontaneous
  Country: US (occurrence: None)
  Receive Date: 20250904
  Receipt Date: 20250904
  Transmission Date: 20251020
  Serious: Yes (unspecified)
  Sender: FDA-CTU
  Company Number: None

PATIENT
  Age: 34 Year
  Sex: Male
  Weight: 84.4 kg

DRUGS (1)
  1. FASENRA [Suspect]
     Active Substance: BENRALIZUMAB
     Indication: Eosinophilic granulomatosis with polyangiitis
     Dates: start: 20250306, end: 20250801

REACTIONS (3)
  - Drug reaction with eosinophilia and systemic symptoms [None]
  - Injection site reaction [None]
  - Hypertransaminasaemia [None]

NARRATIVE: CASE EVENT DATE: 20250801
